APPROVED DRUG PRODUCT: BROMPHENIRAMINE MALEATE, PSEUDOEPHEDRINE HYDROCHLORIDE AND DEXTROMETHORPHAN HYDROBROMIDE
Active Ingredient: BROMPHENIRAMINE MALEATE; DEXTROMETHORPHAN HYDROBROMIDE; PSEUDOEPHEDRINE HYDROCHLORIDE
Strength: 2MG/5ML;10MG/5ML;30MG/5ML
Dosage Form/Route: SYRUP;ORAL
Application: A205292 | Product #001 | TE Code: AA
Applicant: PADAGIS US LLC
Approved: Jul 15, 2014 | RLD: No | RS: Yes | Type: RX